FAERS Safety Report 15711250 (Version 1)
Quarter: 2018Q4

REPORT INFORMATION
  Report Type: Spontaneous
  Country: US (occurrence: US)
  Receive Date: 20181211
  Receipt Date: 20181211
  Transmission Date: 20190205
  Serious: Yes (Disabling)
  Sender: FDA-Public Use
  Company Number: US-PFIZER INC-2018505364

PATIENT
  Age: 70 Year
  Sex: Female
  Weight: 90.72 kg

DRUGS (5)
  1. ULTRAM [Concomitant]
     Active Substance: TRAMADOL HYDROCHLORIDE
     Indication: PAIN
     Dosage: 1-2, EVERY 4-6 HOURS
     Route: 048
     Dates: start: 2000
  2. BACLOFEN. [Concomitant]
     Active Substance: BACLOFEN
     Indication: MUSCLE SPASMS
     Dosage: 5 MG (ONE-HALF), 4X/DAY
     Route: 048
     Dates: start: 2000
  3. NEURONTIN [Suspect]
     Active Substance: GABAPENTIN
     Dosage: 800 MG, UNK
     Dates: end: 20181129
  4. GABAPENTIN. [Suspect]
     Active Substance: GABAPENTIN
     Indication: NEURALGIA
     Dosage: 900 MG, ONCE
     Route: 048
     Dates: start: 20181129, end: 20181129
  5. METFORMIN [Concomitant]
     Active Substance: METFORMIN HYDROCHLORIDE
     Indication: TYPE 2 DIABETES MELLITUS
     Dosage: 250 MG (HALF-TABLET), 4X/DAY
     Dates: start: 2015

REACTIONS (5)
  - Tremor [Recovered/Resolved]
  - Burning sensation [Recovered/Resolved]
  - Crying [Recovered/Resolved]
  - Muscle tightness [Recovered/Resolved]
  - Pain [Unknown]

NARRATIVE: CASE EVENT DATE: 20181129
